FAERS Safety Report 10518225 (Version 1)
Quarter: 2014Q4

REPORT INFORMATION
  Report Type: Spontaneous
  Country: US (occurrence: None)
  Receive Date: 20141014
  Receipt Date: 20141014
  Transmission Date: 20150528
  Serious: Yes (Hospitalization)
  Sender: FDA-Public Use
  Company Number: None

PATIENT
  Age: 64 Year
  Sex: Male
  Weight: 129.5 kg

DRUGS (1)
  1. LITHIUM [Suspect]
     Active Substance: LITHIUM CARBONATE
     Indication: BIPOLAR I DISORDER
     Dosage: 150 MG AT BEDTIME PO
     Route: 048
     Dates: start: 20090101, end: 20140715

REACTIONS (8)
  - Abdominal pain [None]
  - Antipsychotic drug level increased [None]
  - Tremor [None]
  - Ataxia [None]
  - Vomiting [None]
  - Sedation [None]
  - Nausea [None]
  - Dyspnoea [None]

NARRATIVE: CASE EVENT DATE: 20140715
